FAERS Safety Report 4874835-5 (Version None)
Quarter: 2006Q1

REPORT INFORMATION
  Report Type: 
  Country: None (occurrence: None)
  Receive Date: 20060104
  Receipt Date: 20051221
  Transmission Date: 20060701
  Serious: Yes (Hospitalization)
  Sender: FDA-Public Use
  Company Number: 2004028169

PATIENT
  Age: 67 Year
  Sex: Female
  Weight: 56 kg

DRUGS (6)
  1. NORVASC [Suspect]
     Indication: HYPERTENSION
     Dosage: 5 MG (5 MG, 1 IN 1 D), ORAL
     Route: 048
     Dates: start: 20030924, end: 20031201
  2. ATELEC (CLINIDIPINE) [Suspect]
     Indication: HYPERTENSION
     Dosage: 20 MG (20 MG, 1 IN 1 D),
     Dates: start: 20031201
  3. PREDNISOLONE [Concomitant]
  4. METHYLCOBAL (MECOBALAMIN) [Concomitant]
  5. FAMOTIDINE [Suspect]
     Indication: GASTRIC ULCER
     Dosage: 20 MG (20 MG, 1 IN 1 D), ORAL
     Route: 048
     Dates: start: 20030401, end: 20040224
  6. DEPAS (ETIZOLAM) [Suspect]
     Indication: INSOMNIA
     Dosage: (1 IN 1 D), ORAL
     Route: 048
     Dates: start: 20030801

REACTIONS (12)
  - ARTERIOSCLEROSIS [None]
  - ASCITES [None]
  - BLOOD LACTATE DEHYDROGENASE INCREASED [None]
  - EPISTAXIS [None]
  - ERYTHEMA [None]
  - GASTRIC ULCER [None]
  - HAEMOLYTIC ANAEMIA [None]
  - NEPHROPATHY [None]
  - NORMOCHROMIC NORMOCYTIC ANAEMIA [None]
  - PLEURAL EFFUSION [None]
  - SYSTEMIC LUPUS ERYTHEMATOSUS [None]
  - THROMBOTIC MICROANGIOPATHY [None]
